FAERS Safety Report 6866962-8 (Version None)
Quarter: 2010Q3

REPORT INFORMATION
  Report Type: 
  Country: None (occurrence: None)
  Receive Date: 20100722
  Receipt Date: 20100722
  Transmission Date: 20110219
  Serious: Yes (Hospitalization, Disabling, Other)
  Sender: FDA-Public Use
  Company Number: None

PATIENT
  Sex: Female
  Weight: 58.9676 kg

DRUGS (2)
  1. AMBIEN [Suspect]
     Indication: INSOMNIA
     Dosage: 10 MG 2 AT BEDTIME
     Dates: start: 20100601
  2. AMBIEN [Suspect]
     Indication: PAIN
     Dosage: 10 MG 2 AT BEDTIME
     Dates: start: 20100601

REACTIONS (3)
  - AMNESIA [None]
  - DEPENDENCE [None]
  - INSOMNIA [None]
